FAERS Safety Report 16402112 (Version 1)
Quarter: 2019Q2

REPORT INFORMATION
  Report Type: Spontaneous
  Country: IT (occurrence: IT)
  Receive Date: 20190607
  Receipt Date: 20190607
  Transmission Date: 20190711
  Serious: Yes (Other)
  Sender: FDA-Public Use
  Company Number: IT-ROCHE-2332108

PATIENT
  Age: 91 Year
  Sex: Female

DRUGS (3)
  1. TRITTICO [Suspect]
     Active Substance: TRAZODONE HYDROCHLORIDE
     Indication: ACUTE PSYCHOSIS
     Dosage: ON 26/APR/2019, SHE RECEIVED MOST RECENT DOSE OF TRAZODONE HYDROCHLORIDE.
     Route: 065
     Dates: start: 20190101
  2. RIVOTRIL [Suspect]
     Active Substance: CLONAZEPAM
     Indication: ACUTE PSYCHOSIS
     Dosage: FORM STRENGTH 25 MG/ML?ON 26/APR/2019, SHE RECEIVED MOST RECENT DOSE OF CLONAZEPAM.
     Route: 065
     Dates: start: 20190101
  3. LARGACTIL [CHLORPROMAZINE] [Suspect]
     Active Substance: CHLORPROMAZINE
     Indication: ACUTE PSYCHOSIS
     Dosage: ON 26/APR/2019, SHE RECEIVED MOST RECENT DOSE OF CHLOPROMAZINE.
     Route: 065
     Dates: start: 20190101

REACTIONS (1)
  - Sopor [Recovering/Resolving]

NARRATIVE: CASE EVENT DATE: 20190426
